FAERS Safety Report 8895084 (Version 1)
Quarter: 2012Q4

REPORT INFORMATION
  Report Type: 
  Country: US (occurrence: US)
  Receive Date: 20121107
  Receipt Date: 20121107
  Transmission Date: 20130627
  Serious: No
  Sender: FDA-Public Use
  Company Number: US-AMGEN-USASP2011060377

PATIENT
  Age: 11 Year
  Sex: Male
  Weight: 45.81 kg

DRUGS (1)
  1. ENBREL [Suspect]
     Indication: JUVENILE ARTHRITIS
     Dosage: UNK
     Dates: start: 20111111

REACTIONS (2)
  - Full blood count increased [Recovered/Resolved]
  - Pyrexia [Recovered/Resolved]
